FAERS Safety Report 11180682 (Version 3)
Quarter: 2015Q3

REPORT INFORMATION
  Report Type: Report from Study
  Country: US (occurrence: US)
  Receive Date: 20150611
  Receipt Date: 20150720
  Transmission Date: 20151125
  Serious: Yes (Hospitalization)
  Sender: FDA-Public Use
  Company Number: US-JNJFOC-20150604829

PATIENT
  Age: 49 Year
  Sex: Male
  Weight: 136.08 kg

DRUGS (2)
  1. USTEKINUMAB [Suspect]
     Active Substance: USTEKINUMAB
     Indication: PRODUCT USED FOR UNKNOWN INDICATION
     Route: 058
     Dates: start: 201308, end: 201309
  2. INFLIXIMAB, RECOMBINANT [Suspect]
     Active Substance: INFLIXIMAB
     Indication: PSORIASIS
     Route: 042
     Dates: start: 200508, end: 200806

REACTIONS (2)
  - Abdominal pain [Recovered/Resolved]
  - Diabetic gastroparesis [Recovered/Resolved]

NARRATIVE: CASE EVENT DATE: 20140314
